FAERS Safety Report 9503469 (Version 1)
Quarter: 2013Q3

REPORT INFORMATION
  Report Type: Spontaneous
  Country: US (occurrence: US)
  Receive Date: 20130906
  Receipt Date: 20130906
  Transmission Date: 20140515
  Serious: No
  Sender: FDA-Public Use
  Company Number: US-ROXANE LABORATORIES, INC.-2013-RO-01485RO

PATIENT
  Age: 81 Year
  Sex: Female

DRUGS (1)
  1. IRBESARTAN HCTZ [Suspect]
     Indication: HYPERTENSION
     Route: 048
     Dates: start: 201308

REACTIONS (2)
  - Abdominal discomfort [Recovered/Resolved]
  - Abdominal pain upper [Recovered/Resolved]
